FAERS Safety Report 24319516 (Version 1)
Quarter: 2024Q3

REPORT INFORMATION
  Report Type: Spontaneous
  Country: US (occurrence: US)
  Receive Date: 20240914
  Receipt Date: 20240914
  Transmission Date: 20241017
  Serious: No
  Sender: AMGEN
  Company Number: US-AMGEN-USASP2024179778

PATIENT
  Sex: Male

DRUGS (1)
  1. AMJEVITA [Suspect]
     Active Substance: ADALIMUMAB-ATTO
     Indication: Eczema
     Dosage: UNK
     Route: 065

REACTIONS (2)
  - Off label use [Unknown]
  - Product communication issue [Unknown]
